FAERS Safety Report 10602270 (Version 1)
Quarter: 2014Q4

REPORT INFORMATION
  Report Type: Report from Study
  Country: JP (occurrence: None)
  Receive Date: 20141120
  Receipt Date: 20141120
  Transmission Date: 20150529
  Serious: Yes (Other)
  Sender: FDA-Public Use
  Company Number: JP-017716

PATIENT
  Age: 51 Year
  Sex: Male
  Weight: 81 kg

DRUGS (11)
  1. PREDONINE [Suspect]
     Active Substance: PREDNISOLONE\PREDNISOLONE ACETATE\PREDNISOLONE SODIUM SUCCINATE
     Indication: PROSTATE CANCER METASTATIC
     Route: 048
     Dates: start: 20130926, end: 20140110
  2. DEGARELIX [Suspect]
     Active Substance: DEGARELIX
     Indication: PROSTATE CANCER METASTATIC
     Route: 058
     Dates: start: 20130628, end: 20130628
  3. DECADRON [Concomitant]
     Active Substance: DEXAMETHASONE
  4. HUMALOG [Concomitant]
     Active Substance: INSULIN LISPRO
  5. TAKEPRON [Concomitant]
     Active Substance: LANSOPRAZOLE
  6. TAXOTERE [Concomitant]
     Active Substance: DOCETAXEL
  7. ZOMETA [Concomitant]
     Active Substance: ZOLEDRONIC ACID
  8. CASODEX [Concomitant]
     Active Substance: BICALUTAMIDE
  9. PRIMPERAN [Concomitant]
     Active Substance: METOCLOPRAMIDE HYDROCHLORIDE
  10. RANMARK [Concomitant]
     Active Substance: DENOSUMAB
  11. LANTUS [Concomitant]
     Active Substance: INSULIN GLARGINE

REACTIONS (4)
  - Diabetes mellitus [None]
  - Off label use [None]
  - Nausea [None]
  - Cancer pain [None]

NARRATIVE: CASE EVENT DATE: 20131213
